FAERS Safety Report 9743173 (Version 2)
Quarter: 2015Q3

REPORT INFORMATION
  Report Type: Spontaneous
  Country: US (occurrence: US)
  Receive Date: 20131210
  Receipt Date: 20150804
  Transmission Date: 20151125
  Serious: No
  Sender: FDA-Public Use
  Company Number: US-GILEAD-2009-0024863

PATIENT
  Age: 72 Year
  Sex: Male
  Weight: 83.91 kg

DRUGS (5)
  1. RESTORIL [Concomitant]
     Active Substance: TEMAZEPAM
  2. LETAIRIS [Suspect]
     Active Substance: AMBRISENTAN
     Indication: PULMONARY ARTERIAL HYPERTENSION
     Route: 048
     Dates: start: 20080529
  3. SENSIPAR [Concomitant]
     Active Substance: CINACALCET HYDROCHLORIDE
  4. REVATIO [Concomitant]
     Active Substance: SILDENAFIL CITRATE
  5. TRAMADOL. [Concomitant]
     Active Substance: TRAMADOL

REACTIONS (3)
  - Pain in extremity [Unknown]
  - Fatigue [Unknown]
  - Decreased appetite [Unknown]
